FAERS Safety Report 22017651 (Version 1)
Quarter: 2023Q1

REPORT INFORMATION
  Report Type: Spontaneous
  Country: US (occurrence: None)
  Receive Date: 20230217
  Receipt Date: 20230217
  Transmission Date: 20230418
  Serious: Yes (Other)
  Sender: FDA-Public Use
  Company Number: None

PATIENT
  Sex: Female

DRUGS (9)
  1. MEKINIST [Suspect]
     Active Substance: TRAMETINIB DIMETHYL SULFOXIDE
     Indication: Lung carcinoma cell type unspecified stage 0
     Dosage: FREQUENCY : AS DIRECTED;?
     Route: 048
     Dates: start: 20220112
  2. MEKINIST [Suspect]
     Active Substance: TRAMETINIB DIMETHYL SULFOXIDE
     Dosage: FREQUENCY : AS DIRECTED;?
     Route: 048
  3. AZELAC ACID GEL [Concomitant]
  4. CICLOPIROX CRE [Concomitant]
  5. DEXAMETHASONE [Concomitant]
     Active Substance: DEXAMETHASONE
  6. ELIQUIS [Concomitant]
     Active Substance: APIXABAN
  7. FLUOCIN ACET SPL [Concomitant]
  8. FLUOCINONIDE SOL [Concomitant]
  9. TRIAMCINOLON OIN [Concomitant]

REACTIONS (9)
  - Therapy cessation [None]
  - Acne [None]
  - Dry skin [None]
  - Dry skin [None]
  - Skin irritation [None]
  - Pruritus [None]
  - Skin fissures [None]
  - Ingrowing nail [None]
  - Liver function test increased [None]
